FAERS Safety Report 9624525 (Version 2)
Quarter: 2013Q4

REPORT INFORMATION
  Report Type: Spontaneous
  Country: VN (occurrence: VN)
  Receive Date: 20131015
  Receipt Date: 20131015
  Transmission Date: 20140711
  Serious: Yes (Death, Hospitalization)
  Sender: FDA-Public Use
  Company Number: VN-BAXTER-2013BAX038306

PATIENT
  Age: 68 Year
  Sex: Male

DRUGS (1)
  1. DIANEAL LOW CALCIUM (2,5MEQ.L) PERITIONEAL DIALYSIS SOLUTION WITH 1.5% [Suspect]
     Indication: PERITONEAL DIALYSIS
     Route: 033
     Dates: start: 20100830, end: 20130930

REACTIONS (3)
  - Cardiac failure [Fatal]
  - Respiratory failure [Fatal]
  - Peritonitis bacterial [Recovering/Resolving]
